FAERS Safety Report 8473958-1 (Version None)
Quarter: 2012Q2

REPORT INFORMATION
  Report Type: 
  Country: None (occurrence: None)
  Receive Date: 20120621
  Receipt Date: 20120606
  Transmission Date: 20120825
  Serious: Yes (Other)
  Sender: FDA-Public Use
  Company Number: US-2012-10709

PATIENT
  Age: 42 Year
  Sex: Male

DRUGS (3)
  1. FLUDARADINE (FLUDARADINE PHOSPHATE) [Suspect]
     Indication: BONE MARROW CONDITIONING REGIMEN
     Dosage: 160 MG/M2, PARENTERAL
     Route: 051
  2. BUSULFAN [Suspect]
     Indication: BONE MARROW CONDITIONING REGIMEN
     Dosage: 260 MG/M2, INTRAVENOUS
     Route: 042
  3. ALEMTUZUMAB (ALEMTUZUMAB) [Suspect]
     Indication: BONE MARROW CONDITIONING REGIMEN
     Dosage: 80 MG MILLIGRAM(S), PARENTERAL
     Route: 051

REACTIONS (3)
  - CYTOMEGALOVIRUS INFECTION [None]
  - HUMAN HERPESVIRUS 6 INFECTION [None]
  - RENAL FAILURE [None]
